FAERS Safety Report 12084282 (Version 5)
Quarter: 2016Q3

REPORT INFORMATION
  Report Type: Spontaneous
  Country: US (occurrence: US)
  Receive Date: 20160217
  Receipt Date: 20160803
  Transmission Date: 20161109
  Serious: Yes (Other)
  Sender: FDA-Public Use
  Company Number: US-ELI_LILLY_AND_COMPANY-US201602001128

PATIENT
  Sex: Female
  Weight: 104 kg

DRUGS (6)
  1. ORENITRAM [Suspect]
     Active Substance: TREPROSTINIL
     Dosage: 14 MG, TID
     Route: 065
  2. LETAIRIS [Suspect]
     Active Substance: AMBRISENTAN
     Indication: PRODUCT USED FOR UNKNOWN INDICATION
     Dosage: 10 MG, QD
     Route: 048
     Dates: start: 20130823
  3. ORENITRAM [Suspect]
     Active Substance: TREPROSTINIL
     Indication: PULMONARY ARTERIAL HYPERTENSION
     Dosage: 13.75 MG, TID
     Route: 048
     Dates: start: 20150819
  4. LETAIRIS [Suspect]
     Active Substance: AMBRISENTAN
     Dosage: 10 MG, QD
     Route: 065
  5. ADCIRCA [Suspect]
     Active Substance: TADALAFIL
     Indication: PRODUCT USED FOR UNKNOWN INDICATION
     Dosage: UNK UNK, UNKNOWN
     Route: 065
  6. COUMADIN [Suspect]
     Active Substance: WARFARIN SODIUM
     Indication: PRODUCT USED FOR UNKNOWN INDICATION
     Dosage: UNK UNK, UNKNOWN
     Route: 065

REACTIONS (15)
  - Diarrhoea [Unknown]
  - Dyspnoea at rest [Not Recovered/Not Resolved]
  - Pneumonia [Unknown]
  - Palpitations [Not Recovered/Not Resolved]
  - Malaise [Unknown]
  - Sinus disorder [Unknown]
  - Cough [Unknown]
  - Dyspnoea exertional [Not Recovered/Not Resolved]
  - Weight increased [Not Recovered/Not Resolved]
  - Dizziness [Unknown]
  - Flushing [Not Recovered/Not Resolved]
  - Pain in extremity [Unknown]
  - Oropharyngeal pain [Unknown]
  - Skin hyperpigmentation [Unknown]
  - Peripheral swelling [Unknown]
